FAERS Safety Report 23993757 (Version 1)
Quarter: 2024Q2

REPORT INFORMATION
  Report Type: Spontaneous
  Country: US (occurrence: US)
  Receive Date: 20240620
  Receipt Date: 20240620
  Transmission Date: 20240716
  Serious: Yes (Other)
  Sender: FDA-Public Use
  Company Number: US-SUN PHARMACEUTICAL INDUSTRIES LTD-2024R1-451529

PATIENT
  Age: 17 Year
  Sex: Male

DRUGS (4)
  1. VINCRISTINE [Suspect]
     Active Substance: VINCRISTINE
     Indication: Chemotherapy
     Dosage: UNK
     Route: 037
  2. METHOTREXATE [Suspect]
     Active Substance: METHOTREXATE
     Indication: Chemotherapy
     Route: 037
  3. DAUNORUBICIN [Suspect]
     Active Substance: DAUNORUBICIN
     Indication: Chemotherapy
     Route: 037
  4. PEGASPARGASE [Suspect]
     Active Substance: PEGASPARGASE
     Indication: Chemotherapy
     Route: 037

REACTIONS (2)
  - COVID-19 [Unknown]
  - Leukopenia [Unknown]

NARRATIVE: CASE EVENT DATE: 20220826
